FAERS Safety Report 14189980 (Version 3)
Quarter: 2019Q2

REPORT INFORMATION
  Report Type: Spontaneous
  Country: JP (occurrence: JP)
  Receive Date: 20171115
  Receipt Date: 20190613
  Transmission Date: 20190711
  Serious: Yes (Death, Life-Threatening, Hospitalization, Disabling, Other)
  Sender: FDA-Public Use
  Company Number: JP-009507513-1711JPN000852J

PATIENT
  Age: 84 Year
  Sex: Male
  Weight: 48 kg

DRUGS (16)
  1. LOXOPROFEN NA [Concomitant]
     Active Substance: LOXOPROFEN SODIUM
     Dosage: 60 MILLIGRAM, TID
     Route: 048
     Dates: start: 20170926, end: 20171107
  2. CALONAL [Concomitant]
     Active Substance: ACETAMINOPHEN
     Dosage: UNK
     Route: 048
     Dates: start: 20171030, end: 20171107
  3. HEPARIN [Concomitant]
     Active Substance: HEPARIN SODIUM
     Dosage: UNK
     Route: 051
     Dates: start: 20171107, end: 20171120
  4. MAGNESIUM (UNSPECIFIED) [Concomitant]
     Active Substance: MAGNESIUM
     Dosage: 1000 MILLIGRAM, TID
     Route: 048
     Dates: start: 20140808, end: 20171107
  5. TSUMURA DAIKENCHUTO EXTRACT GRANULES FOR ETHICAL USE [Concomitant]
     Active Substance: HERBALS
     Dosage: 2.5 GRAM, TID
     Route: 048
     Dates: start: 20141022, end: 20171107
  6. SODIUM PICOSULFATE [Concomitant]
     Active Substance: SODIUM PICOSULFATE
     Dosage: AMOUNT
     Route: 048
     Dates: start: 20141104, end: 20171107
  7. VERAPAMIL HCL [Concomitant]
     Active Substance: VERAPAMIL HYDROCHLORIDE
     Dosage: UNK
     Route: 048
     Dates: start: 20171106, end: 20171126
  8. LIPACREON [Concomitant]
     Active Substance: PANCRELIPASE
     Dosage: 450 MILLIGRAM, TID
     Route: 048
     Dates: start: 20141121, end: 20171107
  9. KEYTRUDA [Suspect]
     Active Substance: PEMBROLIZUMAB
     Indication: NON-SMALL CELL LUNG CANCER
     Dosage: 200 MILLIGRAM, Q3W
     Route: 041
     Dates: start: 20171024, end: 20171024
  10. OXYCODONE [Concomitant]
     Active Substance: OXYCODONE
     Dosage: UNK
     Route: 048
     Dates: start: 20171101, end: 20171107
  11. NEXIUM [Concomitant]
     Active Substance: ESOMEPRAZOLE MAGNESIUM
     Dosage: 200 MILLIGRAM, QD
     Route: 048
     Dates: start: 20140904, end: 20171107
  12. URSODEOXYCHOLIC ACID [Concomitant]
     Active Substance: URSODIOL
     Dosage: 200 MILLIGRAM, TID
     Route: 048
     Dates: start: 20140821, end: 20171107
  13. PRIMPERAN [Concomitant]
     Active Substance: METOCLOPRAMIDE HYDROCHLORIDE
     Dosage: UNK
     Route: 048
     Dates: start: 20171030, end: 20171107
  14. TAKEPRON [Concomitant]
     Active Substance: LANSOPRAZOLE
     Dosage: UNK
     Route: 051
     Dates: start: 20171106, end: 20171126
  15. OXINORM [Concomitant]
     Dosage: UNK
     Route: 048
     Dates: start: 20171030, end: 20171107
  16. MILLACT [Concomitant]
     Dosage: 0.5 GRAM, TID
     Route: 048
     Dates: start: 20141121, end: 20171107

REACTIONS (4)
  - Malignant neoplasm progression [Fatal]
  - Trousseau^s syndrome [Not Recovered/Not Resolved]
  - Cancer pain [Not Recovered/Not Resolved]
  - Malaise [Not Recovered/Not Resolved]

NARRATIVE: CASE EVENT DATE: 20171026
